FAERS Safety Report 8537023 (Version 3)
Quarter: 2014Q1

REPORT INFORMATION
  Report Type: Spontaneous
  Country: US (occurrence: US)
  Receive Date: 20120430
  Receipt Date: 20140116
  Transmission Date: 20141002
  Serious: Yes (Hospitalization, Other)
  Sender: FDA-Public Use
  Company Number: US-BAYER-2012-041499

PATIENT
  Age: 25 Year
  Sex: Female
  Weight: 54.42 kg

DRUGS (9)
  1. YASMIN [Suspect]
     Indication: CONTRACEPTION
     Dosage: UNK
     Dates: start: 200510, end: 200807
  2. YASMIN [Suspect]
     Indication: PREMENSTRUAL SYNDROME
     Dosage: UNK
     Dates: start: 200909, end: 200912
  3. OCELLA [Suspect]
     Indication: CONTRACEPTION
     Dosage: UNK
     Dates: start: 200807, end: 200909
  4. OCELLA [Suspect]
     Indication: PREMENSTRUAL SYNDROME
  5. SINGULAIR [Concomitant]
     Indication: ASTHMA
     Dosage: UNK
     Dates: start: 1996
  6. ALBUTEROL [Concomitant]
  7. LONOX [Concomitant]
     Dosage: 2.5 MG, TID
  8. SYMBICORT [Concomitant]
     Dosage: AS NEEDED
  9. ADVAIR [Concomitant]
     Dosage: UNK

REACTIONS (9)
  - Gallbladder non-functioning [None]
  - Biliary dyskinesia [None]
  - Cholecystitis chronic [None]
  - Injury [None]
  - Pain [None]
  - General physical health deterioration [None]
  - Emotional distress [None]
  - Oesophageal spasm [None]
  - Dyspepsia [None]
